FAERS Safety Report 6341557 (Version 2)
Quarter: 2016Q1

REPORT INFORMATION
  Report Type: Spontaneous
  Country: FR (occurrence: FR)
  Receive Date: 20070625
  Receipt Date: 20160213
  Transmission Date: 20160526
  Serious: Yes (Other)
  Sender: FDA-Public Use
  Company Number: FR-BRISTOL-MYERS SQUIBB COMPANY-13820915

PATIENT
  Sex: Female

DRUGS (2)
  1. PENICILLIN [Suspect]
     Active Substance: PENICILLIN
     Indication: PRODUCT USED FOR UNKNOWN INDICATION
     Dosage: 5 MILLION IU, UNK
     Route: 042
  2. AMOXICILLIN TRIHYDRATE [Suspect]
     Active Substance: AMOXICILLIN
     Indication: INFECTION PROPHYLAXIS
     Dosage: UNK
     Route: 048

REACTIONS (3)
  - Urticaria [Unknown]
  - Pregnancy [Unknown]
  - Live birth [Unknown]
